FAERS Safety Report 21913903 (Version 1)
Quarter: 2023Q1

REPORT INFORMATION
  Report Type: Spontaneous
  Country: US (occurrence: US)
  Receive Date: 20230125
  Receipt Date: 20230125
  Transmission Date: 20230418
  Serious: No
  Sender: FDA-Public Use
  Company Number: US-ALLERGAN-2221313US

PATIENT
  Age: 70 Year
  Sex: Male

DRUGS (2)
  1. BOTOX [Suspect]
     Active Substance: ONABOTULINUMTOXINA
     Indication: Psoriatic arthropathy
     Dosage: UNK, SINGLE
  2. PFIZER-BIONTECH COVID-19 VACCINE [Concomitant]
     Active Substance: TOZINAMERAN
     Dosage: UNK, SINGLE

REACTIONS (5)
  - Accident [Recovered/Resolved]
  - Gastric disorder [Unknown]
  - Glycosylated haemoglobin increased [Unknown]
  - Psoriasis [Unknown]
  - Off label use [Unknown]

NARRATIVE: CASE EVENT DATE: 20210501
